FAERS Safety Report 8558256-X (Version None)
Quarter: 2012Q3

REPORT INFORMATION
  Report Type: 
  Country: None (occurrence: None)
  Receive Date: 20120801
  Receipt Date: 20120725
  Transmission Date: 20120928
  Serious: No
  Sender: FDA-Public Use
  Company Number: DZ-ASTRAZENECA-2012SE52638

PATIENT
  Age: 45 Year
  Sex: Female

DRUGS (4)
  1. NALOXONE [Concomitant]
  2. SEROQUEL XR [Suspect]
     Dosage: DAILY
     Route: 048
  3. DULOXETIME HYDROCHLORIDE [Concomitant]
  4. HYDORXAZINE [Concomitant]

REACTIONS (2)
  - ABNORMAL BEHAVIOUR [None]
  - RAPID EYE MOVEMENTS SLEEP ABNORMAL [None]
